FAERS Safety Report 8606638-X (Version None)
Quarter: 2012Q3

REPORT INFORMATION
  Report Type: 
  Country: None (occurrence: None)
  Receive Date: 20120820
  Receipt Date: 20120807
  Transmission Date: 20120928
  Serious: Yes (Other)
  Sender: FDA-Public Use
  Company Number: NO-PFIZER INC-2012199607

PATIENT
  Age: 68 Year
  Sex: Female

DRUGS (9)
  1. AMLODIPINE [Concomitant]
     Dosage: 10 MG, DAILY
  2. PANTOPRAZOLE [Suspect]
     Indication: GASTROOESOPHAGEAL REFLUX DISEASE
     Dosage: 40MG, DAILY
  3. METOCLOPRAMIDE [Concomitant]
     Dosage: 10 TO 30 MG, DAILY
  4. GLIBENCLAMIDE [Concomitant]
     Dosage: 1.75 MG, DAILY
  5. METFORMIN [Concomitant]
     Dosage: 500 MG, DAILY
  6. LEVOTHYROXINE [Concomitant]
     Dosage: 50 UG, DAILY
  7. PARACETAMOL [Concomitant]
     Dosage: 500-1000 MG DAILY
  8. FLUNITRAZEPAM [Concomitant]
     Dosage: 1 MG, DAILY
  9. DIAZEPAM [Concomitant]
     Dosage: 5 MG, DAILY

REACTIONS (1)
  - NEUROENDOCRINE TUMOUR [None]
